FAERS Safety Report 8998715 (Version 3)
Quarter: 2013Q1

REPORT INFORMATION
  Report Type: Spontaneous
  Country: US (occurrence: US)
  Receive Date: 20130103
  Receipt Date: 20130311
  Transmission Date: 20140127
  Serious: No
  Sender: FDA-Public Use
  Company Number: US-PFIZER INC-2012334276

PATIENT
  Sex: Female

DRUGS (1)
  1. ONDANSETRON [Suspect]
     Indication: NAUSEA
     Dosage: 8 MG, UNK
     Route: 065

REACTIONS (4)
  - Drug ineffective [Unknown]
  - Tablet physical issue [Unknown]
  - Product taste abnormal [Unknown]
  - Dysgeusia [Unknown]
